FAERS Safety Report 6719794-5 (Version None)
Quarter: 2010Q2

REPORT INFORMATION
  Report Type: 
  Country: None (occurrence: None)
  Receive Date: 20100511
  Receipt Date: 20100503
  Transmission Date: 20101027
  Serious: Yes (Other)
  Sender: FDA-Public Use
  Company Number: B0652176A

PATIENT
  Sex: Male
  Weight: 3 kg

DRUGS (3)
  1. ZOFRAN [Suspect]
     Indication: VOMITING
     Dosage: 4MG SINGLE DOSE
     Dates: start: 20100416, end: 20100416
  2. PRIMPERAN TAB [Suspect]
     Indication: VOMITING
     Dosage: 10MG SINGLE DOSE
     Dates: start: 20100416, end: 20100416
  3. RANITIDINA [Concomitant]
     Dosage: 50MG SINGLE DOSE
     Dates: start: 20100416, end: 20100416

REACTIONS (2)
  - HYPERTONIA NEONATAL [None]
  - OFF LABEL USE [None]
